FAERS Safety Report 6185188-7 (Version None)
Quarter: 2009Q2

REPORT INFORMATION
  Report Type: 
  Country: None (occurrence: None)
  Receive Date: 20090511
  Receipt Date: 20090424
  Transmission Date: 20091009
  Serious: Yes (Other)
  Sender: FDA-Public Use
  Company Number: US-JNJFOC-20090501180

PATIENT
  Age: 29 Year
  Sex: Female

DRUGS (15)
  1. FLEXERIL [Suspect]
     Indication: DEPRESSION
  2. FLEXERIL [Suspect]
     Indication: SCHIZOPHRENIA
  3. LEXAPRO [Suspect]
     Indication: DEPRESSION
  4. LEXAPRO [Suspect]
     Indication: SCHIZOPHRENIA
  5. COGENTIN [Suspect]
     Indication: DEPRESSION
  6. COGENTIN [Suspect]
     Indication: SCHIZOPHRENIA
  7. SEROQUEL [Suspect]
     Indication: DEPRESSION
  8. SEROQUEL [Suspect]
     Indication: SCHIZOPHRENIA
  9. ABILIFY [Suspect]
     Indication: DEPRESSION
  10. ABILIFY [Suspect]
     Indication: SCHIZOPHRENIA
  11. VISTARIL [Suspect]
     Indication: DEPRESSION
  12. VISTARIL [Suspect]
     Indication: SCHIZOPHRENIA
  13. LAMICTAL [Suspect]
     Indication: DEPRESSION
  14. LAMICTAL [Suspect]
     Indication: SCHIZOPHRENIA
  15. ALBUTEROL INHALERS [Concomitant]
     Indication: ASTHMA

REACTIONS (2)
  - DIPLOPIA [None]
  - STRABISMUS [None]
